FAERS Safety Report 24411079 (Version 2)
Quarter: 2024Q4

REPORT INFORMATION
  Report Type: Spontaneous
  Country: US (occurrence: US)
  Receive Date: 20241008
  Receipt Date: 20241206
  Transmission Date: 20250114
  Serious: No
  Sender: PFIZER
  Company Number: US-PFIZER INC-202400266178

PATIENT
  Age: 13 Year
  Sex: Male

DRUGS (2)
  1. GENOTROPIN [Suspect]
     Active Substance: SOMATROPIN
     Indication: Growth hormone deficiency
     Dosage: 2.6 MG, ALTERNATE DAY (2.7MG, SO DOES 2.6MG ONE DAY AND 2.8MG THE OTHER DAY)
  2. GENOTROPIN [Suspect]
     Active Substance: SOMATROPIN
     Dosage: 2.8 MG, ALTERNATE DAY (2.7MG, SO DOES 2.6MG ONE DAY AND 2.8MG THE OTHER DAY)

REACTIONS (2)
  - Liquid product physical issue [Unknown]
  - Device physical property issue [Unknown]
